FAERS Safety Report 23098113 (Version 1)
Quarter: 2023Q4

REPORT INFORMATION
  Report Type: Spontaneous
  Country: US (occurrence: None)
  Receive Date: 20231020
  Receipt Date: 20231020
  Transmission Date: 20240110
  Serious: Yes (Hospitalization)
  Sender: FDA-Public Use
  Company Number: None

PATIENT
  Age: 88 Year
  Sex: Male

DRUGS (1)
  1. DEXTROMETHORPHAN HBR AND DOXYLAMINE SUCCINATE [Suspect]
     Active Substance: DEXTROMETHORPHAN\DOXYLAMINE SUCCINATE
     Dosage: OTHER STRENGTH : 15MG; 6.25/15ML;?
     Dates: end: 20230103

REACTIONS (2)
  - Delirium [None]
  - Pneumonia [None]

NARRATIVE: CASE EVENT DATE: 20230103
